FAERS Safety Report 11576076 (Version 3)
Quarter: 2016Q2

REPORT INFORMATION
  Report Type: Report from Study
  Country: FR (occurrence: FR)
  Receive Date: 20150930
  Receipt Date: 20160426
  Transmission Date: 20160815
  Serious: Yes (Hospitalization, Other)
  Sender: FDA-Public Use
  Company Number: FR-ASTELLAS-2015US035076

PATIENT
  Age: 67 Year
  Sex: Male

DRUGS (25)
  1. TACROLIMUS. [Suspect]
     Active Substance: TACROLIMUS
     Dosage: 6 MG, ONCE DAILY, MORNING
     Route: 048
     Dates: start: 20150404, end: 20150412
  2. TACROLIMUS. [Suspect]
     Active Substance: TACROLIMUS
     Route: 048
     Dates: start: 20150911, end: 20150915
  3. TACROLIMUS. [Suspect]
     Active Substance: TACROLIMUS
     Dosage: 7.5 MG, ONCE DAILY, MORNING
     Route: 048
     Dates: start: 20160106, end: 20160301
  4. AMLODIPINE [Concomitant]
     Active Substance: AMLODIPINE BESYLATE
     Dosage: 10 UNK, UNK
     Route: 065
     Dates: start: 201601
  5. MYCOPHENOLATE MOFETIL. [Concomitant]
     Active Substance: MYCOPHENOLATE MOFETIL
     Indication: IMMUNOSUPPRESSION
     Route: 065
     Dates: start: 201502, end: 201504
  6. TACROLIMUS. [Suspect]
     Active Substance: TACROLIMUS
     Indication: TRANSPLANT REJECTION
     Dosage: 5.5 MG, 1:1 HOUR BEFORE OR 2 HOURS AFTER MEAL
     Route: 065
     Dates: start: 20150318
  7. TACROLIMUS. [Suspect]
     Active Substance: TACROLIMUS
     Dosage: 9 MG, ONCE DAILY, MORNING
     Route: 048
     Dates: start: 20150916, end: 20151016
  8. CELLCEPT [Suspect]
     Active Substance: MYCOPHENOLATE MOFETIL\MYCOPHENOLATE MOFETIL HYDROCHLORIDE
     Indication: TRANSPLANT REJECTION
     Dosage: 250 MG, MORNING AND EVENING
     Route: 048
     Dates: start: 20150206, end: 20150403
  9. BISOPROLOL [Concomitant]
     Active Substance: BISOPROLOL
     Dosage: 10 MG, DAILY DOSE
     Route: 065
     Dates: start: 201506, end: 201506
  10. BETAXOLOL. [Concomitant]
     Active Substance: BETAXOLOL
     Indication: HYPERTENSION
     Route: 065
     Dates: start: 201506
  11. AZATHIOPRINE. [Concomitant]
     Active Substance: AZATHIOPRINE
     Route: 065
     Dates: start: 201504
  12. TACROLIMUS. [Suspect]
     Active Substance: TACROLIMUS
     Dosage: 7 MG, ONCE DAILY, MORNING
     Route: 048
     Dates: start: 20160302, end: 20160324
  13. ATORVASTATIN [Concomitant]
     Active Substance: ATORVASTATIN
     Indication: LIPIDS INCREASED
     Route: 065
     Dates: start: 201412
  14. AMLODIPINE [Concomitant]
     Active Substance: AMLODIPINE BESYLATE
     Indication: HYPERTENSION
     Route: 065
     Dates: start: 201507, end: 201511
  15. ROVALCYTE [Suspect]
     Active Substance: VALGANCICLOVIR HYDROCHLORIDE
     Indication: CYTOMEGALOVIRUS INFECTION
     Dosage: 450 MG, MORNING
     Route: 048
     Dates: start: 20150216, end: 20150410
  16. AZATHIOPRINE. [Concomitant]
     Active Substance: AZATHIOPRINE
     Indication: IMMUNOSUPPRESSION
     Route: 065
     Dates: start: 201502, end: 201504
  17. TACROLIMUS. [Suspect]
     Active Substance: TACROLIMUS
     Route: 048
     Dates: start: 20150416, end: 20150428
  18. TACROLIMUS. [Suspect]
     Active Substance: TACROLIMUS
     Dosage: 8.5 MG, ONCE DAILY, MORNING
     Route: 048
     Dates: start: 20150429, end: 20150519
  19. TACROLIMUS. [Suspect]
     Active Substance: TACROLIMUS
     Dosage: 8.5 MG, ONCE DAILY, MORNING
     Route: 048
     Dates: start: 20151017, end: 20151110
  20. TACROLIMUS. [Suspect]
     Active Substance: TACROLIMUS
     Dosage: 8 MG, ONCE DAILY, MORNING
     Route: 048
     Dates: start: 20151111, end: 20160105
  21. BISOPROLOL [Concomitant]
     Active Substance: BISOPROLOL
     Indication: HYPERTENSION
     Dosage: 7.5 MG, DAILY DOSE
     Route: 065
     Dates: start: 201503, end: 201506
  22. TACROLIMUS. [Suspect]
     Active Substance: TACROLIMUS
     Route: 048
     Dates: start: 20150413, end: 20150415
  23. TACROLIMUS. [Suspect]
     Active Substance: TACROLIMUS
     Route: 048
     Dates: start: 20150805, end: 20150910
  24. AMLODIPINE [Concomitant]
     Active Substance: AMLODIPINE BESYLATE
     Dosage: 5 UNK, UNK
     Route: 065
     Dates: start: 201511, end: 201601
  25. TACROLIMUS. [Suspect]
     Active Substance: TACROLIMUS
     Dosage: 9.5 MG, ONCE DAILY, MORNING
     Route: 048
     Dates: start: 20150520, end: 20150804

REACTIONS (14)
  - Tremor [Recovered/Resolved]
  - Anaemia [Recovered/Resolved]
  - Leukopenia [Recovered/Resolved]
  - Hyperkeratosis [Recovered/Resolved]
  - Cytomegalovirus infection [Recovered/Resolved]
  - Skin papilloma [Recovering/Resolving]
  - Renal impairment [Not Recovered/Not Resolved]
  - Arrhythmia [Not Recovered/Not Resolved]
  - Blood creatinine increased [Recovered/Resolved]
  - Haematuria [Recovered/Resolved]
  - Xerosis [Recovering/Resolving]
  - Mucous stools [Recovered/Resolved]
  - Haematochezia [Recovered/Resolved]
  - Epstein-Barr virus infection [Unknown]

NARRATIVE: CASE EVENT DATE: 20150403
